FAERS Safety Report 9631942 (Version 1)
Quarter: 2013Q4

REPORT INFORMATION
  Report Type: Spontaneous
  Country: US (occurrence: None)
  Receive Date: 20131017
  Receipt Date: 20131017
  Transmission Date: 20140711
  Serious: Yes (Disabling)
  Sender: FDA-Public Use
  Company Number: None

PATIENT
  Age: 24 Year
  Sex: Female
  Weight: 51.26 kg

DRUGS (1)
  1. CIPROFLOXACIN [Suspect]
     Indication: URINARY TRACT INFECTION
     Dosage: 1 PILL
     Route: 048
     Dates: start: 20130903, end: 20130907

REACTIONS (5)
  - Hypoaesthesia [None]
  - Neuropathy peripheral [None]
  - Muscle twitching [None]
  - Musculoskeletal stiffness [None]
  - Feeling abnormal [None]
